FAERS Safety Report 23351348 (Version 2)
Quarter: 2024Q2

REPORT INFORMATION
  Report Type: Report from Study
  Country: MX (occurrence: MX)
  Receive Date: 20231229
  Receipt Date: 20240625
  Transmission Date: 20240716
  Serious: Yes (Life-Threatening, Other)
  Sender: FDA-Public Use
  Company Number: MX-002147023-NVSC2023MX249412

PATIENT

DRUGS (2)
  1. RUXOLITINIB [Suspect]
     Active Substance: RUXOLITINIB
     Indication: Primary myelofibrosis
     Dosage: 1 DOSAGE FORM, EVERY OTHER DAY
     Route: 048
  2. RUXOLITINIB [Suspect]
     Active Substance: RUXOLITINIB
     Dosage: 1 DOSAGE FORM, EVERY OTHER DAY
     Route: 048

REACTIONS (20)
  - Anaemia [Unknown]
  - Peripheral vascular disorder [Not Recovered/Not Resolved]
  - Crying [Unknown]
  - Platelet count increased [Unknown]
  - Urticaria [Unknown]
  - Drug ineffective [Unknown]
  - Nervous system disorder [Unknown]
  - Neuralgia [Unknown]
  - Bone pain [Unknown]
  - Arthralgia [Unknown]
  - Sciatica [Unknown]
  - Speech disorder [Unknown]
  - Skin exfoliation [Unknown]
  - Feeling abnormal [Unknown]
  - Depression [Unknown]
  - Visual impairment [Unknown]
  - Abdominal pain upper [Unknown]
  - Haemoglobin increased [Unknown]
  - Discomfort [Unknown]
  - Off label use [Unknown]
